FAERS Safety Report 11295794 (Version 1)
Quarter: 2015Q3

REPORT INFORMATION
  Report Type: Spontaneous
  Country: US (occurrence: US)
  Receive Date: 20150722
  Receipt Date: 20150722
  Transmission Date: 20151125
  Serious: No
  Sender: FDA-Public Use
  Company Number: US-ELI_LILLY_AND_COMPANY-US200906006902

PATIENT
  Sex: Female

DRUGS (1)
  1. EVISTA [Suspect]
     Active Substance: RALOXIFENE HYDROCHLORIDE
     Indication: BONE DISORDER
     Dosage: UNK, UNKNOWN
     Route: 065
     Dates: start: 200411

REACTIONS (4)
  - Night sweats [Recovering/Resolving]
  - Oedema peripheral [Recovered/Resolved]
  - Hot flush [Recovering/Resolving]
  - Fluid retention [Unknown]
